FAERS Safety Report 7990581-3 (Version None)
Quarter: 2011Q4

REPORT INFORMATION
  Report Type: 
  Country: None (occurrence: None)
  Receive Date: 20111219
  Receipt Date: 20111010
  Transmission Date: 20120403
  Serious: No
  Sender: FDA-Public Use
  Company Number: US-ASTRAZENECA-2011SE26322

PATIENT
  Age: 64 Year
  Sex: Female
  Weight: 90.7 kg

DRUGS (3)
  1. INSULIN [Concomitant]
     Indication: TYPE 2 DIABETES MELLITUS
  2. BLOOD PRESSURE MEDICATION [Concomitant]
     Indication: BLOOD PRESSURE
  3. CRESTOR [Suspect]
     Route: 048

REACTIONS (5)
  - ASTHENIA [None]
  - BALANCE DISORDER [None]
  - FALL [None]
  - TOOTH INJURY [None]
  - PAIN [None]
